FAERS Safety Report 15558848 (Version 2)
Quarter: 2019Q3

REPORT INFORMATION
  Report Type: Report from Study
  Country: US (occurrence: US)
  Receive Date: 20181029
  Receipt Date: 20190926
  Transmission Date: 20191004
  Serious: Yes (Other)
  Sender: FDA-Public Use
  Company Number: US-ROCHE-2205341

PATIENT
  Age: 40 Year
  Sex: Female
  Weight: 98.97 kg

DRUGS (1)
  1. OCREVUS [Suspect]
     Active Substance: OCRELIZUMAB
     Indication: RELAPSING MULTIPLE SCLEROSIS
     Dosage: 11/OCT/2018: FULL DOSE ?DATE OF NEXT OCRELIZUMAB INFUSIONS ARE 11/APR/2018, 25/APR/2018 AND 12/APR/2
     Route: 042
     Dates: start: 20180408

REACTIONS (4)
  - Nausea [Recovered/Resolved]
  - Hemiparesis [Not Recovered/Not Resolved]
  - Headache [Not Recovered/Not Resolved]
  - White blood cell count abnormal [Not Recovered/Not Resolved]

NARRATIVE: CASE EVENT DATE: 20180528
